FAERS Safety Report 19050814 (Version 2)
Quarter: 2021Q2

REPORT INFORMATION
  Report Type: Spontaneous
  Country: IT (occurrence: IT)
  Receive Date: 20210323
  Receipt Date: 20210421
  Transmission Date: 20210717
  Serious: Yes (Hospitalization)
  Sender: FDA-Public Use
  Company Number: IT-CELGENEUS-ITA-20210304177

PATIENT
  Age: 71 Year
  Sex: Male

DRUGS (12)
  1. AZACITIDINE. [Suspect]
     Active Substance: AZACITIDINE
     Indication: ACUTE MYELOID LEUKAEMIA
     Route: 065
     Dates: start: 202103, end: 20210322
  2. FUROSEMIDE. [Concomitant]
     Active Substance: FUROSEMIDE
     Indication: CARDIAC FAILURE CONGESTIVE
     Route: 065
     Dates: start: 20201230
  3. PANTOPRAZOLE [Concomitant]
     Active Substance: PANTOPRAZOLE
     Indication: PEPTIC ULCER
     Route: 065
     Dates: start: 2010
  4. ALLOPURINOL. [Concomitant]
     Active Substance: ALLOPURINOL
     Indication: PROPHYLAXIS
     Route: 065
     Dates: start: 20210118
  5. CETRIZINE [Concomitant]
     Active Substance: CETIRIZINE HYDROCHLORIDE
     Indication: PERIVASCULAR DERMATITIS
     Route: 065
     Dates: start: 20210128
  6. AMIODARONE [Concomitant]
     Active Substance: AMIODARONE
     Indication: ATRIAL FIBRILLATION
     Route: 065
     Dates: start: 20201230
  7. RAMIPRIL. [Concomitant]
     Active Substance: RAMIPRIL
     Indication: CARDIAC FAILURE CONGESTIVE
     Route: 065
     Dates: start: 20201230
  8. VENETOCLAX. [Suspect]
     Active Substance: VENETOCLAX
     Indication: ACUTE MYELOID LEUKAEMIA
     Route: 065
     Dates: start: 202103, end: 20210322
  9. PEVONEDISTAT [Suspect]
     Active Substance: PEVONEDISTAT
     Indication: ACUTE MYELOID LEUKAEMIA
     Route: 065
     Dates: start: 202103, end: 20210322
  10. METHYLPREDNISOLONE. [Concomitant]
     Active Substance: METHYLPREDNISOLONE
     Indication: PERIVASCULAR DERMATITIS
     Route: 065
     Dates: start: 20210129, end: 20210405
  11. RIVAROXABAN [Concomitant]
     Active Substance: RIVAROXABAN
     Indication: ATRIAL FIBRILLATION
     Route: 065
     Dates: start: 202001, end: 20210405
  12. BISOPROLOL [Concomitant]
     Active Substance: BISOPROLOL
     Indication: CARDIAC FAILURE CONGESTIVE
     Route: 065
     Dates: start: 20201230

REACTIONS (1)
  - Abscess jaw [Recovered/Resolved]

NARRATIVE: CASE EVENT DATE: 20210306
